FAERS Safety Report 8970903 (Version 2)
Quarter: 2013Q1

REPORT INFORMATION
  Report Type: Report from Study
  Country: US (occurrence: NL)
  Receive Date: 20121218
  Receipt Date: 20130131
  Transmission Date: 20140127
  Serious: Yes (Hospitalization)
  Sender: FDA-Public Use
  Company Number: NL-PFIZER INC-2012316910

PATIENT
  Age: 51 Year
  Sex: Male
  Weight: 101 kg

DRUGS (11)
  1. GENOTROPIN [Suspect]
     Dosage: 0.4 MG, 1X/DAY, 7INJECTIONS/WEEK
     Route: 058
     Dates: start: 20100507
  2. LANTUS [Concomitant]
     Indication: DIABETES MELLITUS
     Dosage: UNK
     Dates: start: 20070101
  3. NOVORAPID [Concomitant]
     Indication: DIABETES MELLITUS
     Dosage: UNK
     Dates: start: 20070101
  4. ANDROGEL [Concomitant]
     Indication: LUTEINISING HORMONE DEFICIENCY
     Dosage: UNK
     Dates: start: 20080201
  5. ANDROGEL [Concomitant]
     Indication: FOLLICLE-STIMULATING HORMONE DEFICIENCY
  6. ANDROGEL [Concomitant]
     Indication: HYPOGONADISM MALE
  7. GLUCOPHAGE [Concomitant]
     Indication: DIABETES MELLITUS
     Dosage: UNK
     Dates: start: 20080905
  8. SIMVASTATIN [Concomitant]
     Dosage: UNK
     Dates: start: 20110516
  9. ASCAL [Concomitant]
     Dosage: UNK
     Dates: start: 20110616
  10. SELOKEEN ZOC [Concomitant]
     Dosage: UNK
     Dates: start: 20110616
  11. NORTRILEN [Concomitant]
     Indication: DEPRESSION
     Dosage: UNK
     Dates: start: 20110616

REACTIONS (1)
  - Chest pain [Recovered/Resolved]
